FAERS Safety Report 9406673 (Version 1)
Quarter: 2013Q3

REPORT INFORMATION
  Report Type: Spontaneous
  Country: CH (occurrence: CH)
  Receive Date: 20130718
  Receipt Date: 20130718
  Transmission Date: 20140515
  Serious: Yes (Hospitalization, Other)
  Sender: FDA-Public Use
  Company Number: CH-ABBOTT-13X-151-1118483-00

PATIENT
  Sex: Female

DRUGS (15)
  1. CREON [Suspect]
     Indication: PANCREATIC INSUFFICIENCY
     Dosage: LIGHT MEALS: 10000 U; MAIN MEALS: 25^000 U
     Dates: start: 2003, end: 2013
  2. CREON [Suspect]
     Dates: start: 2013, end: 201304
  3. CREON [Suspect]
     Dates: start: 201304, end: 201305
  4. CREON [Suspect]
     Dosage: LIGHT MEALS: 10000 U; MAIN MEALS: 25^000 U
     Dates: start: 201305
  5. ANTIBIOTICS [Suspect]
     Indication: PRODUCT USED FOR UNKNOWN INDICATION
     Dates: start: 201304
  6. NUTRITION SUPPLEMENT [Suspect]
     Indication: PRODUCT USED FOR UNKNOWN INDICATION
  7. PROBIOTIC [Concomitant]
     Indication: PRODUCT USED FOR UNKNOWN INDICATION
  8. TEBOKAN [Concomitant]
     Indication: PRODUCT USED FOR UNKNOWN INDICATION
  9. SILIBUM MARIANUM [Concomitant]
     Indication: PRODUCT USED FOR UNKNOWN INDICATION
  10. AURUM IGNATUM COMP 2:HOMEOPATHIC DRUG [Concomitant]
     Indication: PRODUCT USED FOR UNKNOWN INDICATION
  11. CALCIMAGON D3 [Concomitant]
     Indication: PRODUCT USED FOR UNKNOWN INDICATION
  12. VITAMINS WITH MINERALS [Concomitant]
     Indication: PRODUCT USED FOR UNKNOWN INDICATION
  13. VITAMINS W/AMINO ACIDS [Concomitant]
     Indication: PRODUCT USED FOR UNKNOWN INDICATION
  14. ZINK [Concomitant]
     Indication: PRODUCT USED FOR UNKNOWN INDICATION
  15. VITAMIN E [Concomitant]
     Indication: PRODUCT USED FOR UNKNOWN INDICATION

REACTIONS (7)
  - Cataract [Unknown]
  - Macular degeneration [Unknown]
  - Gastrointestinal disorder [Unknown]
  - Abdominal adhesions [Unknown]
  - Diarrhoea [Recovered/Resolved]
  - Rash [Recovering/Resolving]
  - Rash pruritic [Recovering/Resolving]
